FAERS Safety Report 24575994 (Version 1)
Quarter: 2024Q4

REPORT INFORMATION
  Report Type: Spontaneous
  Country: US (occurrence: US)
  Receive Date: 20241104
  Receipt Date: 20241104
  Transmission Date: 20250115
  Serious: Yes (Other)
  Sender: ORGANON
  Company Number: US-ORGANON-O2410USA002645

PATIENT
  Sex: Female
  Weight: 56.689 kg

DRUGS (2)
  1. NEXPLANON [Suspect]
     Active Substance: ETONOGESTREL
     Indication: Contraception
     Dosage: 1 IMPLANT OF 68 MG, FOR 3 YEARS, IN ARM
     Route: 059
     Dates: start: 20240829
  2. NEXPLANON [Suspect]
     Active Substance: ETONOGESTREL
     Indication: Muscle spasms

REACTIONS (5)
  - Haemorrhage urinary tract [Not Recovered/Not Resolved]
  - Polymenorrhoea [Not Recovered/Not Resolved]
  - Menstrual clots [Not Recovered/Not Resolved]
  - Product prescribing issue [Unknown]
  - Product use in unapproved indication [Unknown]

NARRATIVE: CASE EVENT DATE: 20240101
